FAERS Safety Report 25336276 (Version 4)
Quarter: 2025Q2

REPORT INFORMATION
  Report Type: Report from Study
  Country: US (occurrence: US)
  Receive Date: 20250520
  Receipt Date: 20250624
  Transmission Date: 20250717
  Serious: Yes (Other)
  Sender: UCB
  Company Number: US-UCBSA-2025029034

PATIENT
  Age: 27 Year
  Sex: Male
  Weight: 62 kg

DRUGS (7)
  1. FINTEPLA [Suspect]
     Active Substance: FENFLURAMINE
     Indication: Lennox-Gastaut syndrome
     Dosage: 2.5 MILLILITER, 2X/DAY (BID)
     Dates: start: 20241206
  2. FINTEPLA [Suspect]
     Active Substance: FENFLURAMINE
     Indication: Seizure
     Dosage: 5 MILLILITER, 2X/DAY (BID)
  3. FINTEPLA [Suspect]
     Active Substance: FENFLURAMINE
     Dosage: 7.5 MILLILITER, 2X/DAY (BID)
  4. FINTEPLA [Suspect]
     Active Substance: FENFLURAMINE
     Dosage: 10 MILLILITER, 2X/DAY (BID)
  5. FINTEPLA [Suspect]
     Active Substance: FENFLURAMINE
  6. FINTEPLA [Suspect]
     Active Substance: FENFLURAMINE
     Dosage: 10 MILLILITER, 2X/DAY (BID)
  7. FINTEPLA [Suspect]
     Active Substance: FENFLURAMINE
     Dosage: 10 MILLILITER, 2X/DAY (BID)

REACTIONS (5)
  - Aortic valve incompetence [Not Recovered/Not Resolved]
  - Left ventricular hypertrophy [Not Recovered/Not Resolved]
  - Urinary incontinence [Not Recovered/Not Resolved]
  - Off label use [Unknown]
  - Overdose [Unknown]

NARRATIVE: CASE EVENT DATE: 20250301
